FAERS Safety Report 8571089-3 (Version None)
Quarter: 2012Q3

REPORT INFORMATION
  Report Type: 
  Country: None (occurrence: None)
  Receive Date: 20120806
  Receipt Date: 20120731
  Transmission Date: 20120928
  Serious: No
  Sender: FDA-Public Use
  Company Number: US-PFIZER INC-2012137889

PATIENT
  Sex: Female
  Weight: 88.435 kg

DRUGS (4)
  1. ERYTHROMYCIN BASE [Concomitant]
     Indication: BRONCHITIS
     Dosage: 500 MG, 2X/DAY
  2. SYMBICORT [Concomitant]
     Dosage: ONE PUFF, TWICE DAILY
     Dates: start: 20120604
  3. VAGIFEM [Concomitant]
     Dosage: 10 UG, ONE INSERT IN VAGINA BIWEEKLY
     Dates: start: 20101022
  4. ADVIL COLD AND SINUS [Suspect]
     Indication: NASOPHARYNGITIS
     Dosage: UNK

REACTIONS (4)
  - SINUSITIS [None]
  - NASOPHARYNGITIS [None]
  - COUGH [None]
  - FAECES DISCOLOURED [None]
